FAERS Safety Report 5174245-X (Version None)
Quarter: 2006Q4

REPORT INFORMATION
  Report Type: 
  Country: None (occurrence: None)
  Receive Date: 20061214
  Receipt Date: 20061206
  Transmission Date: 20070319
  Serious: Yes (Hospitalization, Other)
  Sender: FDA-Public Use
  Company Number: DE-JNJFOC-20061201573

PATIENT
  Sex: Male
  Weight: 30.8 kg

DRUGS (1)
  1. CONCERTA [Suspect]
     Indication: DRUG USE FOR UNKNOWN INDICATION
     Route: 048

REACTIONS (5)
  - CONVULSION [None]
  - ELECTROCARDIOGRAM QT PROLONGED [None]
  - SINUS ARRHYTHMIA [None]
  - SUPRAVENTRICULAR EXTRASYSTOLES [None]
  - SYNCOPE [None]
